FAERS Safety Report 4394029-X (Version None)
Quarter: 2004Q3

REPORT INFORMATION
  Report Type: 
  Country: None (occurrence: None)
  Receive Date: 20040707
  Receipt Date: 20040624
  Transmission Date: 20050211
  Serious: Yes (Other)
  Sender: FDA-Public Use
  Company Number: CHPA2003US02270

PATIENT
  Age: 41 Year
  Sex: Male

DRUGS (1)
  1. EX-LAX LAXATIVE UNKNOWN FORMULA (NCH)(UNKNOWN) UNKNOWN [Suspect]
     Indication: WEIGHT CONTROL
     Dosage: ORAL
     Route: 048
     Dates: start: 19900101

REACTIONS (10)
  - CONSTIPATION [None]
  - DRUG DEPENDENCE [None]
  - DRUG INEFFECTIVE FOR UNAPPROVED INDICATION [None]
  - ECONOMIC PROBLEM [None]
  - EMOTIONAL DISORDER [None]
  - GASTROENTERITIS [None]
  - HAEMORRHOIDS [None]
  - INJURY [None]
  - LAXATIVE ABUSE [None]
  - RECTAL HAEMORRHAGE [None]
